FAERS Safety Report 23654548 (Version 1)
Quarter: 2024Q1

REPORT INFORMATION
  Report Type: Spontaneous
  Country: US (occurrence: None)
  Receive Date: 20240319
  Receipt Date: 20240319
  Transmission Date: 20240410
  Serious: Yes (Life-Threatening, Hospitalization)
  Sender: FDA-Public Use
  Company Number: None

PATIENT
  Age: 29 Year
  Sex: Female
  Weight: 65.25 kg

DRUGS (7)
  1. BACLOFEN [Suspect]
     Active Substance: BACLOFEN
     Indication: Muscle spasms
     Dates: start: 20231223, end: 20231229
  2. BACLOFEN [Suspect]
     Active Substance: BACLOFEN
     Indication: Back pain
  3. TESTOSTERONE [Concomitant]
     Active Substance: TESTOSTERONE
  4. FINASTERIDE [Concomitant]
     Active Substance: FINASTERIDE
  5. vegan multivitamin [Concomitant]
  6. EMERGEN-C [Concomitant]
     Active Substance: VITAMINS
  7. IBUPROFEN [Concomitant]
     Active Substance: IBUPROFEN

REACTIONS (9)
  - Insomnia [None]
  - Back pain [None]
  - Hypoaesthesia [None]
  - Hypoaesthesia [None]
  - Toxicity to various agents [None]
  - Brain fog [None]
  - Incontinence [None]
  - Dysarthria [None]
  - Nervous system disorder [None]

NARRATIVE: CASE EVENT DATE: 20231224
